FAERS Safety Report 4645689-7 (Version None)
Quarter: 2005Q2

REPORT INFORMATION
  Report Type: 
  Country: None (occurrence: None)
  Receive Date: 20050331
  Receipt Date: 20050224
  Transmission Date: 20051028
  Serious: No
  Sender: FDA-Public Use
  Company Number: 05P-163-0291829-00

PATIENT
  Age: 81 Year
  Sex: Female
  Weight: 47.1741 kg

DRUGS (17)
  1. HUMIRA [Suspect]
     Indication: RHEUMATOID ARTHRITIS
     Dosage: 40 MG, 1 IN 2 WK, SUBCUTANEOUS
     Route: 058
     Dates: start: 20040201
  2. OMEPRAZOLE [Concomitant]
  3. ATENOLOL [Concomitant]
  4. DIAZIDE [Concomitant]
  5. OXYBUTYNIN [Concomitant]
  6. FORTEO [Concomitant]
  7. ZELNORM [Concomitant]
  8. MACROGOL [Concomitant]
  9. HYDROXYCHLOROQUINE PHOSPHATE [Concomitant]
  10. METHOTREXATE [Concomitant]
  11. TRAMADOL HCL [Concomitant]
  12. VITAMINS [Concomitant]
  13. CALCIUM WITH VITAMIN D [Concomitant]
  14. ERGOCALCIFEROL [Concomitant]
  15. GLUCOSAMINE [Concomitant]
  16. LINSEED OIL [Concomitant]
  17. FOLIC ACID [Concomitant]

REACTIONS (2)
  - COUGH [None]
  - RESPIRATORY TRACT INFECTION [None]
